FAERS Safety Report 5958299-6 (Version None)
Quarter: 2008Q4

REPORT INFORMATION
  Report Type: 
  Country: None (occurrence: None)
  Receive Date: 20081107
  Receipt Date: 20081028
  Transmission Date: 20090506
  Serious: Yes (Hospitalization)
  Sender: FDA-Public Use
  Company Number: 2008BI015946

PATIENT
  Age: 41 Year
  Sex: Female

DRUGS (3)
  1. TYSABRI [Suspect]
     Indication: MULTIPLE SCLEROSIS
     Dosage: 300 MG;QM;IV
     Route: 042
     Dates: start: 20071105
  2. CON MEDS [Concomitant]
  3. PREV MEDS [Concomitant]

REACTIONS (6)
  - PAIN [None]
  - POST PROCEDURAL COMPLICATION [None]
  - SEASONAL ALLERGY [None]
  - SINUS DISORDER [None]
  - SPINAL FUSION SURGERY [None]
  - URTICARIA [None]
